FAERS Safety Report 10618747 (Version 4)
Quarter: 2015Q2

REPORT INFORMATION
  Report Type: Report from Study
  Country: CN (occurrence: None)
  Receive Date: 20141125
  Receipt Date: 20150415
  Transmission Date: 20150821
  Serious: Yes (Hospitalization, Other)
  Sender: FDA-Public Use
  Company Number: 2014-20714

PATIENT
  Age: 52 Year
  Sex: Female
  Weight: 70 kg

DRUGS (7)
  1. ROSUVASTATIN CALCIUM. [Concomitant]
     Active Substance: ROSUVASTATIN CALCIUM
  2. ACARBOSE. [Concomitant]
     Active Substance: ACARBOSE
  3. FELODIPINE. [Concomitant]
     Active Substance: FELODIPINE
  4. MIXTARD 70/30 /00806401/ (INSULIN HUMAN, INSULIN HUMAN INJECTION, ISOPHANE) [Concomitant]
  5. METFORMIN [Concomitant]
     Active Substance: METFORMIN HYDROCHLORIDE
  6. AFLIBERCEPT [Suspect]
     Active Substance: AFLIBERCEPT
     Indication: DIABETIC RETINAL OEDEMA
     Dosage: 2 MG MILLIGRAM(S), V9/VEGF TRAP-EYE PER PROTOCOL, INTRAOCULAR?
     Route: 031
     Dates: start: 20140828, end: 20140828
  7. AFLIBERCEPT [Suspect]
     Active Substance: AFLIBERCEPT
     Indication: DIABETIC RETINAL OEDEMA
     Dosage: V2/SHAM
     Dates: start: 20140213, end: 20140213

REACTIONS (5)
  - Hyphaema [None]
  - Condition aggravated [None]
  - Corneal oedema [None]
  - Glaucoma [None]
  - Vitreous haemorrhage [None]

NARRATIVE: CASE EVENT DATE: 20141107
